FAERS Safety Report 7964778-2 (Version None)
Quarter: 2011Q4

REPORT INFORMATION
  Report Type: 
  Country: None (occurrence: None)
  Receive Date: 20111208
  Receipt Date: 20110621
  Transmission Date: 20120403
  Serious: Yes (Hospitalization)
  Sender: FDA-Public Use
  Company Number: US-ABBOTT-11P-163-0700497-00

PATIENT
  Sex: Female
  Weight: 3.178 kg

DRUGS (2)
  1. HUMIRA [Suspect]
     Route: 063
  2. HUMIRA [Suspect]
     Indication: MATERNAL EXPOSURE TIMING UNSPECIFIED
     Route: 064

REACTIONS (4)
  - NEONATAL ASPIRATION [None]
  - FOETAL EXPOSURE DURING PREGNANCY [None]
  - RESPIRATORY DISTRESS [None]
  - EXPOSURE DURING BREAST FEEDING [None]
